FAERS Safety Report 23768130 (Version 1)
Quarter: 2024Q2

REPORT INFORMATION
  Report Type: Spontaneous
  Country: GB (occurrence: GB)
  Receive Date: 20240422
  Receipt Date: 20240422
  Transmission Date: 20240716
  Serious: Yes (Other)
  Sender: FDA-Public Use
  Company Number: None

PATIENT
  Age: 92 Year
  Sex: Female

DRUGS (1)
  1. AMLODIPINE [Suspect]
     Active Substance: AMLODIPINE BESYLATE
     Indication: Blood pressure measurement

REACTIONS (11)
  - Joint swelling [Unknown]
  - Peripheral swelling [Unknown]
  - Skin tightness [Unknown]
  - Skin atrophy [Unknown]
  - Blister [Unknown]
  - Pruritus [Unknown]
  - Skin exfoliation [Unknown]
  - Myalgia [Unknown]
  - Muscle spasms [Unknown]
  - Tremor [Unknown]
  - Pain in extremity [Unknown]
